FAERS Safety Report 25485049 (Version 1)
Quarter: 2025Q2

REPORT INFORMATION
  Report Type: Spontaneous
  Country: FR (occurrence: FR)
  Receive Date: 20250626
  Receipt Date: 20250626
  Transmission Date: 20250716
  Serious: Yes (Hospitalization)
  Sender: RANBAXY
  Company Number: FR-AFSSAPS-CN2025000172

PATIENT
  Age: 77 Year
  Sex: Female
  Weight: 95 kg

DRUGS (18)
  1. ESOMEPRAZOLE [Suspect]
     Active Substance: ESOMEPRAZOLE
     Indication: Product used for unknown indication
     Dosage: 20 MILLIGRAM, DAILY
     Route: 048
     Dates: start: 20190314
  2. RAMIPRIL [Suspect]
     Active Substance: RAMIPRIL
     Indication: Hypertension
     Dosage: 5 MILLIGRAM, DAILY
     Route: 048
     Dates: start: 20190314
  3. LEVETIRACETAM [Suspect]
     Active Substance: LEVETIRACETAM
     Indication: Tonic convulsion
     Dosage: 2000 MILLIGRAM, DAILY, 1000MG 1-0-1
     Route: 048
     Dates: start: 201903
  4. DULOXETINE [Suspect]
     Active Substance: DULOXETINE
     Indication: Mixed anxiety and depressive disorder
     Dosage: 150 MILLIGRAM, DAILY
     Route: 048
     Dates: start: 20240321, end: 20250206
  5. DULOXETINE [Suspect]
     Active Substance: DULOXETINE
     Dosage: 60 MILLIGRAM, DAILY
     Route: 048
     Dates: start: 20240206
  6. BROMAZEPAM [Suspect]
     Active Substance: BROMAZEPAM
     Indication: Mixed anxiety and depressive disorder
     Dosage: 7.5 MILLIGRAM, DAILY, 0.25-0-0.5-0.5 CPR
     Route: 048
     Dates: start: 20190314, end: 20240321
  7. LORAZEPAM [Suspect]
     Active Substance: LORAZEPAM
     Indication: Mixed anxiety and depressive disorder
     Dosage: 4.5 MILLIGRAM, DAILY
     Route: 048
     Dates: start: 20240321, end: 20250203
  8. OXAZEPAM [Suspect]
     Active Substance: OXAZEPAM
     Indication: Mixed anxiety and depressive disorder
     Dosage: 15 MILLIGRAM, DAILY, 10MG 1.5 TABLETS IN THE EVENING
     Route: 048
     Dates: start: 20241217, end: 20250210
  9. OXAZEPAM [Suspect]
     Active Substance: OXAZEPAM
     Dosage: 10MG 0,5 CP LE SOIR
     Route: 048
     Dates: start: 20250210
  10. BENSERAZIDE HYDROCHLORIDE\LEVODOPA [Concomitant]
     Active Substance: BENSERAZIDE HYDROCHLORIDE\LEVODOPA
     Indication: Parkinsonism
     Dosage: 2 DOSAGE FORM, DAILY, 1-0-1
     Route: 048
  11. BENSERAZIDE HYDROCHLORIDE\LEVODOPA [Concomitant]
     Active Substance: BENSERAZIDE HYDROCHLORIDE\LEVODOPA
     Indication: Parkinsonism
     Dosage: 4 DOSAGE FORM, DAILY, 2-0-2
     Route: 048
  12. ROPINIROLE [Concomitant]
     Active Substance: ROPINIROLE
     Indication: Parkinsonism
     Dosage: 2 MILLIGRAM, DAILY, 0-0-2 LP
     Route: 048
  13. KARDEGIC [Concomitant]
     Active Substance: ASPIRIN DL-LYSINE
     Indication: Product used for unknown indication
     Dosage: 75 MILLIGRAM, DAILY, 0-0-1
     Route: 048
  14. POLYETHYLENE GLYCOLS [Concomitant]
     Active Substance: POLYETHYLENE GLYCOLS
     Indication: Constipation
     Dosage: 2 DOSAGE FORM, DAILY, 2-0-0
     Route: 048
  15. POTASSIUM CHLORIDE [Concomitant]
     Active Substance: POTASSIUM CHLORIDE
     Indication: Mineral supplementation
     Dosage: 600 MILLIGRAM, DAILY, 1-0-0
     Route: 048
  16. METASONE FUROATE [Concomitant]
     Indication: Mineral supplementation
     Dosage: 50 MCG, DAILY, 0-0-0-1
     Route: 045
  17. SODIUM BICARBONATE [Concomitant]
     Active Substance: SODIUM BICARBONATE
     Indication: Product used for unknown indication
     Dosage: 534 MILLIGRAM, DAILY, 267MG 1-0-1
     Route: 048
  18. ALGINATE [Concomitant]
     Indication: Product used for unknown indication
     Dosage: 1000 MILLIGRAM, DAILY, 500MG 1-0-1
     Route: 048

REACTIONS (2)
  - Hyponatraemia [Not Recovered/Not Resolved]
  - Fall [Not Recovered/Not Resolved]

NARRATIVE: CASE EVENT DATE: 20240301
